FAERS Safety Report 8454307-1 (Version None)
Quarter: 2012Q2

REPORT INFORMATION
  Report Type: 
  Country: None (occurrence: None)
  Receive Date: 20120620
  Receipt Date: 20120423
  Transmission Date: 20120825
  Serious: Yes (Death, Other)
  Sender: FDA-Public Use
  Company Number: PHHO2007KR21038

PATIENT
  Sex: Male
  Weight: 57 kg

DRUGS (3)
  1. EXJADE [Suspect]
     Route: 048
     Dates: start: 20070328
  2. EXJADE [Suspect]
     Dosage: 1000 MG,
     Route: 048
     Dates: start: 20070330, end: 20071019
  3. BLOOD CELLS, PACKED HUMAN [Concomitant]

REACTIONS (13)
  - SEPSIS [None]
  - SEPTIC SHOCK [None]
  - NEOPLASM PROGRESSION [None]
  - BLOOD CREATININE ABNORMAL [None]
  - SINUS TACHYCARDIA [None]
  - DYSPNOEA [None]
  - PYREXIA [None]
  - METABOLIC ACIDOSIS [None]
  - RENAL IMPAIRMENT [None]
  - RENAL FUNCTION TEST ABNORMAL [None]
  - ATRIOVENTRICULAR BLOCK FIRST DEGREE [None]
  - NEOPLASM MALIGNANT [None]
  - CHILLS [None]
